FAERS Safety Report 9210574 (Version 1)
Quarter: 2013Q2

REPORT INFORMATION
  Report Type: Spontaneous
  Country: US (occurrence: US)
  Receive Date: 20130404
  Receipt Date: 20130404
  Transmission Date: 20140414
  Serious: Yes (Hospitalization)
  Sender: FDA-Public Use
  Company Number: US-BAYER-2013-039886

PATIENT
  Age: 42 Year
  Sex: Female
  Weight: 107.3 kg

DRUGS (4)
  1. YAZ [Suspect]
     Indication: MENSTRUATION NORMAL
     Dosage: UNK
  2. YAZ [Suspect]
     Indication: DYSMENORRHOEA
  3. YAZ [Suspect]
     Indication: PREMENSTRUAL SYNDROME
  4. ZOLOFT [Concomitant]
     Dosage: 50 MG, DAILY

REACTIONS (2)
  - Pulmonary embolism [None]
  - Deep vein thrombosis [None]
